FAERS Safety Report 23755052 (Version 2)
Quarter: 2024Q3

REPORT INFORMATION
  Report Type: Spontaneous
  Country: FR (occurrence: FR)
  Receive Date: 20240418
  Receipt Date: 20240710
  Transmission Date: 20241017
  Serious: Yes (Other)
  Sender: SANDOZ
  Company Number: None

PATIENT
  Sex: Female

DRUGS (1)
  1. CIPROFLOXACIN [Suspect]
     Active Substance: CIPROFLOXACIN
     Indication: Bacterial infection
     Dosage: UNK
     Route: 065

REACTIONS (4)
  - Quadriplegia [Unknown]
  - Neuropathy peripheral [Unknown]
  - Neuropsychiatric syndrome [Unknown]
  - Musculoskeletal disorder [Unknown]
